FAERS Safety Report 8741179 (Version 3)
Quarter: 2013Q1

REPORT INFORMATION
  Report Type: Spontaneous
  Country: US (occurrence: US)
  Receive Date: 20120824
  Receipt Date: 20130222
  Transmission Date: 20140127
  Serious: No
  Sender: FDA-Public Use
  Company Number: US-ASTRAZENECA-2012SE00736

PATIENT
  Age: 66 Year
  Sex: Male
  Weight: 70.3 kg

DRUGS (5)
  1. SYMBICORT PMDI [Suspect]
     Indication: CHRONIC OBSTRUCTIVE PULMONARY DISEASE
     Dosage: 160/4.5  MCG 2 PUFFS TWO TIMES A DAY
     Route: 055
     Dates: start: 2010
  2. TOPROL XL [Suspect]
     Indication: HYPERTENSION
     Route: 048
  3. LEVETIRACETAM [Suspect]
     Route: 048
  4. AMLODIPINE BESYLATE [Suspect]
     Route: 065
  5. PREVASTATIN [Suspect]
     Route: 065

REACTIONS (11)
  - Speech disorder [Unknown]
  - Bone pain [Unknown]
  - Chills [Unknown]
  - Condition aggravated [Unknown]
  - Hearing impaired [Unknown]
  - Vision blurred [Unknown]
  - Asthenia [Unknown]
  - Fatigue [Unknown]
  - Muscle spasms [Unknown]
  - Hypertension [Unknown]
  - Drug dose omission [Unknown]
